FAERS Safety Report 6818375-2 (Version None)
Quarter: 2010Q3

REPORT INFORMATION
  Report Type: 
  Country: None (occurrence: None)
  Receive Date: 20100706
  Receipt Date: 20080219
  Transmission Date: 20110219
  Serious: Yes (Other)
  Sender: FDA-Public Use
  Company Number: US-PFIZER INC-2008016005

PATIENT
  Age: 11 Year
  Sex: Female

DRUGS (1)
  1. ZITHROMAX [Suspect]
     Dosage: TWO TEASPOONS
     Route: 048
     Dates: start: 20080201, end: 20080201

REACTIONS (2)
  - MEDICATION ERROR [None]
  - STEVENS-JOHNSON SYNDROME [None]
